FAERS Safety Report 7219631-9 (Version None)
Quarter: 2011Q1

REPORT INFORMATION
  Report Type: 
  Country: None (occurrence: None)
  Receive Date: 20110111
  Receipt Date: 20110103
  Transmission Date: 20110831
  Serious: Yes (Other)
  Sender: FDA-Public Use
  Company Number: US-SANOFI-AVENTIS-2010SA075350

PATIENT
  Age: 55 Year
  Sex: Male
  Weight: 112.49 kg

DRUGS (5)
  1. ASPIRIN [Concomitant]
     Dates: start: 20070901
  2. MULTI-VITAMINS [Concomitant]
     Indication: NUTRITIONAL SUPPORT
     Dates: start: 20070901
  3. LANTUS [Suspect]
     Indication: TYPE 2 DIABETES MELLITUS
     Dosage: 20 UNITS AT BEDTIME OR AS NEEDED
     Route: 058
     Dates: start: 20070901
  4. LISINOPRIL [Concomitant]
     Dates: start: 20070901
  5. TRAVATAN [Concomitant]
     Indication: GLAUCOMA
     Dosage: 1 DROP EACH EYE DAILY
     Dates: start: 20070901

REACTIONS (4)
  - VISUAL ACUITY REDUCED [None]
  - BLINDNESS TRANSIENT [None]
  - VISION BLURRED [None]
  - PHOTOPHOBIA [None]
